FAERS Safety Report 9495750 (Version 3)
Quarter: 2013Q4

REPORT INFORMATION
  Report Type: Spontaneous
  Country: IT (occurrence: IT)
  Receive Date: 20130903
  Receipt Date: 20131023
  Transmission Date: 20140711
  Serious: Yes (Hospitalization)
  Sender: FDA-Public Use
  Company Number: IT-PFIZER INC-2013254110

PATIENT
  Age: 40 Year
  Sex: Female
  Weight: 50 kg

DRUGS (4)
  1. ALPRAZOLAM [Suspect]
     Indication: INTENTIONAL SELF-INJURY
     Dosage: UNK
     Dates: start: 20130715, end: 20130715
  2. VENLAFAXINE HCL [Suspect]
     Indication: INTENTIONAL SELF-INJURY
     Dosage: UNK
     Dates: start: 20130715, end: 20130715
  3. SEROQUEL [Suspect]
     Indication: INTENTIONAL SELF-INJURY
     Dosage: UNK
     Dates: start: 20130715, end: 20130715
  4. DEPAKIN CHRONO [Concomitant]
     Indication: EPILEPSY
     Dosage: 300 MILLIGRAM STRENGTH

REACTIONS (3)
  - Drug abuse [Recovered/Resolved]
  - Sopor [Recovered/Resolved]
  - Intentional self-injury [Recovered/Resolved]
